FAERS Safety Report 7506130-X (Version None)
Quarter: 2011Q2

REPORT INFORMATION
  Report Type: 
  Country: None (occurrence: None)
  Receive Date: 20110526
  Receipt Date: 20110519
  Transmission Date: 20111010
  Serious: Yes (Other)
  Sender: FDA-Public Use
  Company Number: AU-SANOFI-AVENTIS-2011SA031228

PATIENT

DRUGS (1)
  1. DOCETAXEL [Suspect]

REACTIONS (2)
  - EXTRAVASATION [None]
  - COLLAPSE OF LUNG [None]
